FAERS Safety Report 14915563 (Version 2)
Quarter: 2019Q1

REPORT INFORMATION
  Report Type: Spontaneous
  Country: FR (occurrence: FR)
  Receive Date: 20180518
  Receipt Date: 20190206
  Transmission Date: 20190417
  Serious: Yes (Other)
  Sender: FDA-Public Use
  Company Number: FR-APOPHARMA USA, INC.-2018AP013504

PATIENT
  Age: 67 Year
  Sex: Female

DRUGS (6)
  1. ALKERAN [Suspect]
     Active Substance: MELPHALAN
     Indication: STEM CELL TRANSPLANT
     Dosage: 140 MG/M2, SINGLE
     Route: 065
  2. ETOPOSIDE. [Suspect]
     Active Substance: ETOPOSIDE
     Indication: STEM CELL TRANSPLANT
     Dosage: 200 MG/M2, BID
     Route: 065
  3. ARACYTINE [Suspect]
     Active Substance: CYTARABINE
     Indication: STEM CELL TRANSPLANT
     Dosage: 1 DF, BID
     Route: 065
  4. BENDAMUSTINE [Suspect]
     Active Substance: BENDAMUSTINE
     Indication: STEM CELL TRANSPLANT
     Dosage: 200 MG/M2, QD
     Route: 065
  5. MOBOZIL [Concomitant]
     Indication: HAEMATOPOIETIC STEM CELL MOBILISATION
     Dosage: UNK, UNKNOWN
     Route: 065
  6. G-CSF [Concomitant]
     Active Substance: GRANULOCYTE COLONY-STIMULATING FACTOR NOS
     Indication: HAEMATOPOIETIC STEM CELL MOBILISATION
     Dosage: UNK, UNKNOWN
     Route: 065

REACTIONS (10)
  - Venoocclusive liver disease [Recovered/Resolved]
  - Generalised oedema [Recovered/Resolved]
  - Schistocytosis [Recovered/Resolved]
  - Ascites [Recovered/Resolved]
  - Nephropathy [Unknown]
  - Thrombotic microangiopathy [Unknown]
  - Haemorrhagic disorder [Unknown]
  - Renal failure [Unknown]
  - Pericardial effusion [Unknown]
  - Acute kidney injury [Recovered/Resolved]
